FAERS Safety Report 6908452-X (Version None)
Quarter: 2010Q3

REPORT INFORMATION
  Report Type: 
  Country: None (occurrence: None)
  Receive Date: 20100716
  Receipt Date: 20100305
  Transmission Date: 20110219
  Serious: Yes (Other)
  Sender: FDA-Public Use
  Company Number: 2010034262

PATIENT
  Age: 40 Year
  Sex: Female
  Weight: 132 kg

DRUGS (2)
  1. CELEBREX [Suspect]
     Dosage: 200 MG, SINGLE
  2. LODINE [Suspect]

REACTIONS (8)
  - DIZZINESS [None]
  - DYSARTHRIA [None]
  - FATIGUE [None]
  - FEELING DRUNK [None]
  - GAIT DISTURBANCE [None]
  - HEADACHE [None]
  - NAUSEA [None]
  - SOMNOLENCE [None]
